FAERS Safety Report 17779344 (Version 4)
Quarter: 2021Q1

REPORT INFORMATION
  Report Type: Spontaneous
  Country: GB (occurrence: GB)
  Receive Date: 20200513
  Receipt Date: 20210120
  Transmission Date: 20210419
  Serious: Yes (Disabling, Other)
  Sender: FDA-Public Use
  Company Number: NVSC2020GB128822

PATIENT
  Age: 38 Year
  Sex: Female
  Weight: 57.15 kg

DRUGS (1)
  1. MOMETASONE FUROATE. [Suspect]
     Active Substance: MOMETASONE FUROATE
     Indication: SINUSITIS
     Dosage: 100 UG, QD
     Route: 045
     Dates: start: 20191230, end: 20200102

REACTIONS (4)
  - Hirsutism [Not Recovered/Not Resolved]
  - Joint noise [Not Recovered/Not Resolved]
  - Myalgia [Not Recovered/Not Resolved]
  - Cough [Not Recovered/Not Resolved]

NARRATIVE: CASE EVENT DATE: 20191231
